FAERS Safety Report 19273744 (Version 1)
Quarter: 2021Q2

REPORT INFORMATION
  Report Type: Report from Study
  Country: US (occurrence: US)
  Receive Date: 20210519
  Receipt Date: 20210519
  Transmission Date: 20210717
  Serious: Yes (Hospitalization)
  Sender: FDA-Public Use
  Company Number: US-BIOVITRUM-2021US4486

PATIENT
  Sex: Female

DRUGS (1)
  1. KINERET [Suspect]
     Active Substance: ANAKINRA
     Indication: RHEUMATOID ARTHRITIS
     Route: 058
     Dates: start: 20200124

REACTIONS (5)
  - Loss of personal independence in daily activities [Unknown]
  - Arthritis [Unknown]
  - Lung disorder [Unknown]
  - Herpes zoster [Unknown]
  - Chronic obstructive pulmonary disease [Unknown]
